FAERS Safety Report 9657732 (Version 2)
Quarter: 2013Q4

REPORT INFORMATION
  Report Type: Report from Study
  Country: US (occurrence: US)
  Receive Date: 20131030
  Receipt Date: 20131030
  Transmission Date: 20140711
  Serious: Yes (Hospitalization)
  Sender: FDA-Public Use
  Company Number: PHHO2011US01995

PATIENT
  Age: 75 Year
  Sex: Male
  Weight: 74.4 kg

DRUGS (18)
  1. ERL 080A [Suspect]
     Indication: RENAL TRANSPLANT
     Dosage: 720 MG, UNK
     Route: 048
     Dates: start: 20101202, end: 20101209
  2. CIPRO [Concomitant]
     Dosage: 500 MG, QD
     Dates: start: 20101210
  3. CELEXA [Concomitant]
     Indication: DEPRESSION
     Dosage: 20 MG, QD
     Dates: start: 20101206
  4. SODIUM BICARBONATE [Concomitant]
     Indication: METABOLIC ACIDOSIS
     Dosage: 1300 MG, TID
     Dates: start: 20110110
  5. PENTAMIDINE [Concomitant]
     Dosage: 300 MG, UNK
     Dates: start: 20101211
  6. ASPIRIN [Concomitant]
     Dates: start: 20101216
  7. GLIPIZIDE [Concomitant]
     Dates: start: 20110111
  8. ISOSORBIDE MONONITRATE [Concomitant]
     Dates: start: 20101210
  9. LEVOTHYROXINE SODIUM [Concomitant]
     Dates: start: 20090716
  10. MEDROL [Concomitant]
     Dates: start: 20101220
  11. LOPRESSOR [Concomitant]
     Dates: start: 20101208
  12. ADALAT [Concomitant]
     Dates: start: 20110110
  13. NIFEDIPINE [Concomitant]
     Dates: start: 20110110
  14. PRILOSEC [Concomitant]
     Dates: start: 20101220
  15. K-PHOS [Concomitant]
     Dates: start: 20110110
  16. SLO-MAG [Concomitant]
     Dates: start: 20110110
  17. PROGRAF [Concomitant]
     Dates: start: 20110114
  18. VALCYTE [Concomitant]
     Dates: start: 20101211

REACTIONS (4)
  - Dehydration [Recovered/Resolved]
  - Nausea [Recovered/Resolved]
  - Diarrhoea [Recovered/Resolved]
  - Vomiting [Recovered/Resolved]
